FAERS Safety Report 4266779-7 (Version None)
Quarter: 2004Q1

REPORT INFORMATION
  Report Type: 
  Country: None (occurrence: None)
  Receive Date: 20040108
  Receipt Date: 20030115
  Transmission Date: 20041129
  Serious: No
  Sender: FDA-Public Use
  Company Number: US-BRISTOL-MYERS SQUIBB COMPANY-12159901

PATIENT
  Age: 72 Year
  Sex: Male

DRUGS (3)
  1. CARDIOLITE [Suspect]
  2. VALIUM [Concomitant]
  3. INDERAL [Concomitant]

REACTIONS (3)
  - PHOTOPSIA [None]
  - RETINAL DISORDER [None]
  - VITREOUS FLOATERS [None]
